FAERS Safety Report 4537541-2 (Version None)
Quarter: 2004Q4

REPORT INFORMATION
  Report Type: 
  Country: None (occurrence: None)
  Receive Date: 20041216
  Receipt Date: 20040726
  Transmission Date: 20050328
  Serious: Yes (Other)
  Sender: FDA-Public Use
  Company Number: HQWYE431826JUL04

PATIENT
  Age: 78 Year
  Sex: Female
  Weight: 79.9 kg

DRUGS (5)
  1. EFFEXOR XR [Suspect]
     Indication: DEPRESSION
     Dosage: 150 MG 1X PER 1 DAY
     Dates: start: 20040622, end: 20040622
  2. TRAZODONE HCL [Suspect]
     Dosage: 1 DOSE 1X PER 1 TOT
  3. NIFEDIPINE [Concomitant]
  4. GUAIPHENESIN (GUAIFENESIN) [Concomitant]
  5. LOSARTAN [Concomitant]

REACTIONS (7)
  - CONVULSION [None]
  - FEELING ABNORMAL [None]
  - HALLUCINATION [None]
  - HYPERSOMNIA [None]
  - INSOMNIA [None]
  - PARAESTHESIA [None]
  - UNEVALUABLE EVENT [None]
